FAERS Safety Report 6010033-X (Version None)
Quarter: 2008Q4

REPORT INFORMATION
  Report Type: 
  Country: None (occurrence: None)
  Receive Date: 20081216
  Receipt Date: 20081204
  Transmission Date: 20090506
  Serious: Yes (Hospitalization)
  Sender: FDA-Public Use
  Company Number: GXKR2008GB11572

PATIENT
  Age: 83 Year
  Sex: Female

DRUGS (11)
  1. MIRTAZAPINE [Suspect]
     Indication: DEPRESSION
     Dosage: 30 MG, QD, ORAL
     Route: 048
     Dates: start: 20080613, end: 20080914
  2. OMEPRAZOLE [Suspect]
     Indication: GASTRIC ULCER
     Dosage: 10 MG, QD, ORAL
     Route: 048
     Dates: start: 20070815
  3. BETAHISTINE (BETAHISTINE) [Concomitant]
  4. CALCICHEW D3 (CALCIUM CARBONATE COLECALCIFEROL) [Concomitant]
  5. CODEINE PHOSPHATE AND ACETAMINOPHEN [Concomitant]
  6. COD LIVER OIL FORTIFIED TAB [Concomitant]
  7. CONOTRANE (DIMETICONE, HYDRARGAPHEN) [Concomitant]
  8. EVENING PRIMROSE OIL (OENOTHERA BIENNIS OIL) [Concomitant]
  9. FERROUS SULPHATE (FERROUS SULFAT) [Concomitant]
  10. GAVISCON [Concomitant]
  11. SIMVASTATIN [Concomitant]

REACTIONS (3)
  - CONVULSION [None]
  - HEADACHE [None]
  - HYPONATRAEMIA [None]
